FAERS Safety Report 5993353-4 (Version None)
Quarter: 2008Q4

REPORT INFORMATION
  Report Type: 
  Country: None (occurrence: None)
  Receive Date: 20081209
  Receipt Date: 20080207
  Transmission Date: 20090506
  Serious: No
  Sender: FDA-Public Use
  Company Number: 08H-163-0313859-00

PATIENT
  Age: 57 Year
  Sex: Male

DRUGS (1)
  1. DEMEROL [Suspect]
     Indication: DRUG USE FOR UNKNOWN INDICATION
     Dosage: 50 MG, INTRAVENOUS
     Route: 042
     Dates: start: 20080201, end: 20080201

REACTIONS (1)
  - URTICARIA [None]
